FAERS Safety Report 16763575 (Version 1)
Quarter: 2019Q3

REPORT INFORMATION
  Report Type: Spontaneous
  Country: CR (occurrence: CR)
  Receive Date: 20190902
  Receipt Date: 20190902
  Transmission Date: 20191005
  Serious: Yes (Other)
  Sender: FDA-Public Use
  Company Number: CR-PFIZER INC-2019369990

PATIENT
  Sex: Female

DRUGS (8)
  1. LYRICA [Concomitant]
     Active Substance: PREGABALIN
     Dosage: UNK, AS NEEDED
  2. ENALAPRIL [Concomitant]
     Active Substance: ENALAPRIL
     Indication: HYPERTENSION
     Dosage: UNK, 1X/DAY
  3. CALTRATE D [CALCIUM;COLECALCIFEROL] [Concomitant]
     Indication: OSTEOPENIA
     Dosage: UNK, 1X/DAY
  4. OMEGA 3 [DOCOSAHEXAENOIC ACID;EICOSAPENTAENOIC ACID;TOCOPHEROL] [Concomitant]
     Active Substance: DOCONEXENT\ICOSAPENT\TOCOPHEROL
     Dosage: UNK, 1X/DAY
  5. LIPITOR [Suspect]
     Active Substance: ATORVASTATIN CALCIUM
     Indication: BLOOD CHOLESTEROL INCREASED
     Dosage: UNK, 1X/DAY
     Dates: start: 2005
  6. CELEBRA [Concomitant]
     Active Substance: CELECOXIB
     Dosage: UNK, AS NEEDED
  7. CENTRUM BALANCE [Concomitant]
     Dosage: UNK, 1X/DAY
  8. NEBILET [Concomitant]
     Active Substance: NEBIVOLOL
     Indication: HYPERTENSION
     Dosage: UNK, 1X/DAY

REACTIONS (5)
  - Intentional product misuse [Unknown]
  - Blood cholesterol increased [Unknown]
  - Blood triglycerides increased [Unknown]
  - Hypoacusis [Not Recovered/Not Resolved]
  - Myalgia [Unknown]
